FAERS Safety Report 4786150-9 (Version None)
Quarter: 2005Q3

REPORT INFORMATION
  Report Type: 
  Country: None (occurrence: None)
  Receive Date: 20050930
  Receipt Date: 20050930
  Transmission Date: 20060218
  Serious: No
  Sender: FDA-Public Use
  Company Number: None

PATIENT
  Age: 49 Year
  Sex: Female

DRUGS (3)
  1. LISINOPRIL [Suspect]
     Indication: HYPERTENSION
  2. PROTONIX [Concomitant]
  3. BENADRYL [Concomitant]

REACTIONS (5)
  - EYE SWELLING [None]
  - PARAESTHESIA [None]
  - RESPIRATORY RATE INCREASED [None]
  - SWELLING FACE [None]
  - THROAT TIGHTNESS [None]
